FAERS Safety Report 9424683 (Version 3)
Quarter: 2013Q3

REPORT INFORMATION
  Report Type: Spontaneous
  Country: US (occurrence: None)
  Receive Date: 20130725
  Receipt Date: 20130813
  Transmission Date: 20140515
  Serious: Yes (Other)
  Sender: FDA-Public Use
  Company Number: JPI-P-033841

PATIENT
  Age: 72 Year
  Sex: Male

DRUGS (2)
  1. XYREM [Suspect]
     Indication: NARCOLEPSY
     Dosage: 9GM (4.5GM, 2 IN 1 D) ORAL
     Route: 048
     Dates: start: 20130415
  2. ROPINIROLE [Concomitant]

REACTIONS (2)
  - Surgery [None]
  - Device breakage [None]
